FAERS Safety Report 8794533 (Version 2)
Quarter: 2012Q4

REPORT INFORMATION
  Report Type: 
  Country: US (occurrence: US)
  Receive Date: 20120917
  Receipt Date: 20121024
  Transmission Date: 20130627
  Serious: Yes (Other)
  Sender: FDA-Public Use
  Company Number: PHEH2012US017802

PATIENT
  Sex: Female

DRUGS (10)
  1. VIVELLE DOT [Suspect]
     Dosage: 0.05 ug, UNK
     Route: 062
  2. VIVELLE DOT [Suspect]
     Dosage: 0.075 ug, UNK
     Route: 062
  3. VIVELLE DOT [Suspect]
     Dosage: 0.05 ug, UNK
     Route: 062
  4. PROGESTERONE [Concomitant]
  5. ZETIA [Concomitant]
  6. LEVOXYL [Concomitant]
  7. SINGULAIR [Concomitant]
  8. VITAMIN D [Concomitant]
  9. VITAMIN B NOS [Concomitant]
  10. VITAMIN E [Concomitant]

REACTIONS (6)
  - Thyroid cancer [Unknown]
  - Vulvovaginal discomfort [Recovered/Resolved]
  - Vulvovaginal swelling [Recovered/Resolved]
  - Vulvovaginal pruritus [Unknown]
  - Application site discolouration [Unknown]
  - Wrong technique in drug usage process [Unknown]
